FAERS Safety Report 8015437-1 (Version None)
Quarter: 2011Q4

REPORT INFORMATION
  Report Type: 
  Country: None (occurrence: None)
  Receive Date: 20111223
  Receipt Date: 20111209
  Transmission Date: 20120403
  Serious: Yes (Hospitalization, Other)
  Sender: FDA-Public Use
  Company Number: 2011AP003011

PATIENT
  Age: 67 Year
  Sex: Male

DRUGS (3)
  1. PREDNISONE TAB [Suspect]
     Indication: PRODUCT USED FOR UNKNOWN INDICATION
  2. METHOTREXATE [Suspect]
     Indication: RHEUMATOID ARTHRITIS
     Dosage: 25 MG, SC, QW
     Route: 058
  3. DICLOFENAC SODIUM [Suspect]
     Indication: PRODUCT USED FOR UNKNOWN INDICATION

REACTIONS (6)
  - BONE MARROW FAILURE [None]
  - SKIN ULCER [None]
  - PANCYTOPENIA [None]
  - TOXICITY TO VARIOUS AGENTS [None]
  - SMALL INTESTINAL OBSTRUCTION [None]
  - SKIN FIBROSIS [None]
